FAERS Safety Report 18577543 (Version 4)
Quarter: 2021Q4

REPORT INFORMATION
  Report Type: Spontaneous
  Country: PK (occurrence: PK)
  Receive Date: 20201203
  Receipt Date: 20211108
  Transmission Date: 20220303
  Serious: Yes (Other)
  Sender: FDA-Public Use
  Company Number: PK-PFIZER INC-2020469172

PATIENT
  Age: 30 Year
  Sex: Male
  Weight: 70 kg

DRUGS (10)
  1. ENBREL [Suspect]
     Active Substance: ETANERCEPT
     Indication: Spondylitis
     Dosage: 50 MILLIGRAM, QWK
     Route: 058
  2. ENBREL [Suspect]
     Active Substance: ETANERCEPT
     Indication: Arthritis
     Dosage: UNK
     Route: 065
     Dates: start: 20201126, end: 202103
  3. ENBREL [Suspect]
     Active Substance: ETANERCEPT
     Dosage: UNK
     Route: 065
     Dates: start: 202110
  4. KETOPROFEN [Suspect]
     Active Substance: KETOPROFEN
     Indication: Product used for unknown indication
     Dosage: TAKE 1 TABLET IN THE EVENING AFTER MEAL, AS PER NEED
     Route: 065
  5. KETOPROFEN [Suspect]
     Active Substance: KETOPROFEN
     Dosage: 500 MG TAB 0+0+1+0 AFTER MEAL; FOR 6 WEEKS
     Route: 065
  6. CHOLECALCIFEROL [Suspect]
     Active Substance: CHOLECALCIFEROL
     Indication: Product used for unknown indication
     Dosage: 1 X CAPSULES, ONCE A MONTH, AFTER MEAL, CONTINUE
     Route: 065
  7. CHOLECALCIFEROL [Suspect]
     Active Substance: CHOLECALCIFEROL
     Dosage: TAKE 1 CAPSULE AFTER 2 MONTH/ONCE IN 2 MONTHS
     Route: 065
  8. COSENTYX [Suspect]
     Active Substance: SECUKINUMAB
     Indication: Product used for unknown indication
     Dosage: 150 MILLIGRAM, QWK
     Route: 065
     Dates: start: 201811, end: 20201014
  9. FOLIC ACID [Concomitant]
     Active Substance: FOLIC ACID
     Dosage: 5 MG (1 X TABLETS, ONCE A DAY, AFTER MEAL, CONTINUE)
  10. NAPROXEN SODIUM [Concomitant]
     Active Substance: NAPROXEN SODIUM
     Dosage: 550 MILLIGRAM

REACTIONS (9)
  - Platelet count increased [Unknown]
  - Neck pain [Unknown]
  - Condition aggravated [Unknown]
  - Pain in extremity [Unknown]
  - Back pain [Unknown]
  - Musculoskeletal stiffness [Unknown]
  - Off label use [Unknown]
  - Peripheral swelling [Unknown]
  - Drug ineffective for unapproved indication [Unknown]

NARRATIVE: CASE EVENT DATE: 20201121
